FAERS Safety Report 15386343 (Version 2)
Quarter: 2018Q3

REPORT INFORMATION
  Report Type: Spontaneous
  Country: JP (occurrence: JP)
  Receive Date: 20180914
  Receipt Date: 20180925
  Transmission Date: 20181010
  Serious: No
  Sender: FDA-Public Use
  Company Number: JP-PFIZER INC-2018276301

PATIENT
  Age: 87 Year
  Sex: Female

DRUGS (3)
  1. KAMISHOYOSAN [Concomitant]
     Active Substance: HERBALS
     Dosage: UNK
     Dates: start: 20180704
  2. EFFEXOR [Suspect]
     Active Substance: VENLAFAXINE HYDROCHLORIDE
     Indication: DEPRESSION
     Dosage: 37.5 MG, DAILY
     Dates: start: 20180704
  3. YOKUKANSAN [Concomitant]
     Active Substance: HERBALS
     Dosage: UNK
     Dates: end: 20180705

REACTIONS (2)
  - Dysuria [Recovered/Resolved]
  - Neurosis [Unknown]

NARRATIVE: CASE EVENT DATE: 20180705
